FAERS Safety Report 11163104 (Version 2)
Quarter: 2015Q3

REPORT INFORMATION
  Report Type: Spontaneous
  Country: US (occurrence: US)
  Receive Date: 20150604
  Receipt Date: 20150709
  Transmission Date: 20151125
  Serious: Yes (Other)
  Sender: FDA-Public Use
  Company Number: US-ELI_LILLY_AND_COMPANY-US201505010024

PATIENT
  Age: 41 Year
  Sex: Female

DRUGS (8)
  1. LITHIUM CARBONATE. [Concomitant]
     Active Substance: LITHIUM CARBONATE
     Dosage: UNK, UNKNOWN
     Route: 065
     Dates: start: 2010
  2. NUEDEXTA [Suspect]
     Active Substance: DEXTROMETHORPHAN HYDROBROMIDE\QUINIDINE SULFATE
     Indication: DEPRESSION
  3. RITALIN [Concomitant]
     Active Substance: METHYLPHENIDATE HYDROCHLORIDE
     Dosage: UNK, UNKNOWN
     Route: 065
  4. ESTRADIOL. [Concomitant]
     Active Substance: ESTRADIOL
     Dosage: UNK, UNKNOWN
     Route: 065
  5. NYSTATIN. [Concomitant]
     Active Substance: NYSTATIN
  6. NUEDEXTA [Suspect]
     Active Substance: DEXTROMETHORPHAN HYDROBROMIDE\QUINIDINE SULFATE
     Indication: CRANIOCEREBRAL INJURY
     Dosage: 1 DF, QD
     Route: 065
     Dates: start: 20141016, end: 20141022
  7. PROZAC [Suspect]
     Active Substance: FLUOXETINE HYDROCHLORIDE
     Indication: PRODUCT USED FOR UNKNOWN INDICATION
     Dosage: UNK, UNKNOWN
     Route: 065
     Dates: end: 20141020
  8. SAPHRIS [Concomitant]
     Active Substance: ASENAPINE MALEATE
     Dosage: UNK, UNKNOWN
     Route: 065

REACTIONS (2)
  - Suicidal ideation [Recovering/Resolving]
  - Condition aggravated [Recovering/Resolving]

NARRATIVE: CASE EVENT DATE: 20141016
